FAERS Safety Report 5626434-5 (Version None)
Quarter: 2008Q1

REPORT INFORMATION
  Report Type: 
  Country: None (occurrence: None)
  Receive Date: 20080214
  Receipt Date: 20080207
  Transmission Date: 20080703
  Serious: Yes (Other)
  Sender: FDA-Public Use
  Company Number: CA-JNJFOC-20080201829

PATIENT
  Sex: Male

DRUGS (3)
  1. REMINYL ER [Suspect]
     Indication: TRAUMATIC BRAIN INJURY
  2. LOXAPINE [Suspect]
     Indication: TRAUMATIC BRAIN INJURY
  3. CLOPIXAL [Suspect]
     Indication: TRAUMATIC BRAIN INJURY

REACTIONS (1)
  - MOVEMENT DISORDER [None]
